FAERS Safety Report 4844529-0 (Version None)
Quarter: 2005Q4

REPORT INFORMATION
  Report Type: 
  Country: None (occurrence: None)
  Receive Date: 20051130
  Receipt Date: 20051130
  Transmission Date: 20060501
  Serious: Yes (Other)
  Sender: FDA-Public Use
  Company Number: None

PATIENT
  Sex: Female
  Weight: 79 kg

DRUGS (3)
  1. VP-16 [Suspect]
     Indication: ACUTE MYELOID LEUKAEMIA
     Dosage: 10 MG/KG/DAY CIV ON DAYS 1-4
     Route: 042
     Dates: start: 20051029
  2. VP-16 [Suspect]
     Indication: BONE MARROW DISORDER
     Dosage: 10 MG/KG/DAY CIV ON DAYS 1-4
     Route: 042
     Dates: start: 20051029
  3. NEUPOGEN [Suspect]
     Dosage: 10MG/KG/DAY SC BEGINNING ON DAY 14 UNTIL PBSC COLLECTION IS COMPLETED OR WBC } 50,000/MCL
     Route: 058

REACTIONS (4)
  - CLOSTRIDIUM COLITIS [None]
  - FEBRILE NEUTROPENIA [None]
  - PANCYTOPENIA [None]
  - SEPSIS [None]
